FAERS Safety Report 7216440-1 (Version None)
Quarter: 2011Q1

REPORT INFORMATION
  Report Type: 
  Country: None (occurrence: None)
  Receive Date: 20110107
  Receipt Date: 20101220
  Transmission Date: 20110831
  Serious: No
  Sender: FDA-Public Use
  Company Number: US-B.I. PHARMACEUTICALS,INC./RIDGEFIELD-2010-BP-15230BP

PATIENT
  Sex: Female

DRUGS (14)
  1. ALLOPURINOL [Concomitant]
  2. NEPHROCAPS [Concomitant]
  3. FLAXSEED OIL [Concomitant]
  4. VITAMIN D [Concomitant]
  5. CLARITIN [Concomitant]
  6. LASIX [Concomitant]
  7. METAMUCIL-2 [Concomitant]
  8. VITAMIN B-12 [Concomitant]
  9. PREMARIN [Concomitant]
  10. SYNTHROID [Concomitant]
     Indication: HYPOTHYROIDISM
  11. PRADAXA [Suspect]
     Indication: ATRIAL FLUTTER
     Dosage: 150 MG
     Route: 048
     Dates: start: 20101205
  12. METOPROLOL TARTRATE [Concomitant]
     Indication: HYPERTENSION
  13. ASPIRIN [Concomitant]
  14. BENADRYL [Concomitant]

REACTIONS (4)
  - ABDOMINAL PAIN UPPER [None]
  - FLATULENCE [None]
  - DIARRHOEA [None]
  - EPISTAXIS [None]
